FAERS Safety Report 16967781 (Version 1)
Quarter: 2019Q4

REPORT INFORMATION
  Report Type: Spontaneous
  Country: AE (occurrence: AE)
  Receive Date: 20191028
  Receipt Date: 20191028
  Transmission Date: 20200122
  Serious: Yes (Other)
  Sender: FDA-Public Use
  Company Number: AE-BAYER-2019-191589

PATIENT
  Age: 72 Year
  Sex: Female

DRUGS (2)
  1. STIVARGA [Suspect]
     Active Substance: REGORAFENIB
     Indication: METASTASES TO BONE
  2. STIVARGA [Suspect]
     Active Substance: REGORAFENIB
     Indication: HORMONE-REFRACTORY PROSTATE CANCER
     Dosage: 80 MG, QD
     Route: 048

REACTIONS (2)
  - Off label use [None]
  - Septic shock [None]
